FAERS Safety Report 9919869 (Version 1)
Quarter: 2014Q1

REPORT INFORMATION
  Report Type: Report from Study
  Country: DK (occurrence: DK)
  Receive Date: 20140224
  Receipt Date: 20140224
  Transmission Date: 20141002
  Serious: Yes (Hospitalization)
  Sender: FDA-Public Use
  Company Number: GB-ASTRAZENECA-2014SE11202

PATIENT
  Age: 71 Year
  Sex: Female

DRUGS (2)
  1. TICAGRELOR [Suspect]
     Route: 048
  2. ACETYLSALICYLIC ACID [Suspect]
     Route: 048

REACTIONS (2)
  - Ischaemic stroke [None]
  - Haematoma [None]
